FAERS Safety Report 8606008-4 (Version None)
Quarter: 2012Q3

REPORT INFORMATION
  Report Type: 
  Country: None (occurrence: None)
  Receive Date: 20120820
  Receipt Date: 20120808
  Transmission Date: 20120928
  Serious: Yes (Hospitalization)
  Sender: FDA-Public Use
  Company Number: CH-ROCHE-1099524

PATIENT
  Age: 33 Year
  Sex: Female
  Weight: 70 kg

DRUGS (4)
  1. CLOPIXOL [Interacting]
     Indication: MANIA
     Dosage: DRUG WITHDRAWN
     Route: 048
     Dates: start: 20120630, end: 20120706
  2. CLOPIXOL-ACUTARD [Interacting]
     Indication: MANIA
     Dosage: DRUG WITHDRAWN
     Route: 030
     Dates: start: 20120623, end: 20120629
  3. VALIUM [Suspect]
     Indication: MANIA
     Dosage: DRUG WITHDRAWN
     Route: 030
     Dates: start: 20120623, end: 20120629
  4. AKINETON [Concomitant]
     Route: 048
     Dates: start: 20120623, end: 20120701

REACTIONS (7)
  - NEUROLEPTIC MALIGNANT SYNDROME [None]
  - ALTERED STATE OF CONSCIOUSNESS [None]
  - BLOOD CREATINE PHOSPHOKINASE INCREASED [None]
  - PYREXIA [None]
  - CATATONIA [None]
  - DRUG INTERACTION [None]
  - ACCIDENTAL OVERDOSE [None]
